FAERS Safety Report 5348258-9 (Version None)
Quarter: 2007Q2

REPORT INFORMATION
  Report Type: 
  Country: None (occurrence: None)
  Receive Date: 20070605
  Receipt Date: 20070523
  Transmission Date: 20071010
  Serious: Yes (Other)
  Sender: FDA-Public Use
  Company Number: 2007-01634

PATIENT
  Sex: Male

DRUGS (1)
  1. VELCADE [Suspect]
     Indication: MULTIPLE MYELOMA

REACTIONS (7)
  - ATRIAL FIBRILLATION [None]
  - DIALYSIS [None]
  - LIVER FUNCTION TEST ABNORMAL [None]
  - PERICARDIAL DISEASE [None]
  - RENAL FAILURE [None]
  - RENAL IMPAIRMENT [None]
  - VENTRICULAR TACHYCARDIA [None]
